FAERS Safety Report 13928637 (Version 1)
Quarter: 2017Q3

REPORT INFORMATION
  Report Type: Spontaneous
  Country: US (occurrence: US)
  Receive Date: 20170901
  Receipt Date: 20170901
  Transmission Date: 20171127
  Serious: Yes (Hospitalization, Other)
  Sender: FDA-Public Use
  Company Number: US-APOTEX-2017AP017533

PATIENT
  Age: 38 Year
  Sex: Male

DRUGS (8)
  1. MIDAZOLAM HYDROCHLORIDE INJECTION [Suspect]
     Active Substance: MIDAZOLAM HYDROCHLORIDE
     Indication: SUPPORTIVE CARE
     Dosage: UNK MG, UNK
     Route: 065
  2. METHADONE [Concomitant]
     Active Substance: METHADONE HYDROCHLORIDE
     Indication: PRODUCT USED FOR UNKNOWN INDICATION
     Dosage: 190 MG, QD
     Route: 065
  3. FENTANYL                           /00174602/ [Suspect]
     Active Substance: FENTANYL
     Indication: DYSPNOEA
     Dosage: 500 ?G, PER HOUR
     Route: 065
  4. DIAZEPAM. [Suspect]
     Active Substance: DIAZEPAM
     Indication: DYSPNOEA
     Dosage: 40 MG, UNK
     Route: 042
  5. MORPHINE [Suspect]
     Active Substance: MORPHINE
     Indication: DYSPNOEA
     Dosage: 10 MG, UNK
     Route: 042
  6. ALPRAZOLAM. [Suspect]
     Active Substance: ALPRAZOLAM
     Indication: PRODUCT USED FOR UNKNOWN INDICATION
     Dosage: UNK
     Route: 065
  7. MIDAZOLAM HYDROCHLORIDE INJECTION [Suspect]
     Active Substance: MIDAZOLAM HYDROCHLORIDE
     Indication: DYSPNOEA
     Dosage: 6 MG, PER HOUR
     Route: 065
  8. FENTANYL                           /00174602/ [Suspect]
     Active Substance: FENTANYL
     Indication: SUPPORTIVE CARE
     Dosage: UNK
     Route: 065

REACTIONS (6)
  - Drug tolerance [Unknown]
  - Overdose [Unknown]
  - Brain injury [Unknown]
  - Respiratory distress [Recovered/Resolved]
  - Drug use disorder [Unknown]
  - Cardio-respiratory arrest [Unknown]
